FAERS Safety Report 6447608-X (Version None)
Quarter: 2009Q4

REPORT INFORMATION
  Report Type: 
  Country: None (occurrence: None)
  Receive Date: 20091119
  Receipt Date: 20090812
  Transmission Date: 20100525
  Serious: Yes (Other)
  Sender: FDA-Public Use
  Company Number: US-AMGEN-KDL349890

PATIENT
  Sex: Female
  Weight: 59 kg

DRUGS (8)
  1. ENBREL [Suspect]
     Indication: RHEUMATOID ARTHRITIS
     Route: 058
  2. PLAQUENIL [Concomitant]
     Route: 048
  3. ADVAIR DISKUS 100/50 [Concomitant]
  4. SINGULAIR [Concomitant]
  5. UNKNOWN [Concomitant]
  6. ALLOPURINOL [Concomitant]
     Route: 048
  7. CALCIUM [Concomitant]
  8. VITAMINS [Concomitant]

REACTIONS (3)
  - BURSITIS INFECTIVE [None]
  - CYST [None]
  - LOCALISED INFECTION [None]
